FAERS Safety Report 9922296 (Version 1)
Quarter: 2014Q1

REPORT INFORMATION
  Report Type: Spontaneous
  Country: GB (occurrence: GB)
  Receive Date: 20140225
  Receipt Date: 20140225
  Transmission Date: 20141002
  Serious: Yes (Life-Threatening)
  Sender: FDA-Public Use
  Company Number: GB-GLAXOSMITHKLINE-B0971218A

PATIENT
  Age: 27 Year
  Sex: Female
  Weight: 50 kg

DRUGS (5)
  1. SALBUTAMOL [Suspect]
     Indication: WHEEZING
     Dosage: 5MG SINGLE DOSE
  2. VITAMIN B COMPOUND [Concomitant]
     Indication: ALCOHOLISM
     Dosage: 1IUAX PER DAY
     Route: 048
  3. MIRTAZAPINE [Concomitant]
     Indication: DEPRESSION
     Route: 048
  4. QUETIAPINE [Concomitant]
     Indication: DEPRESSION
     Route: 048
  5. THIAMINE [Concomitant]
     Indication: ALCOHOLISM
     Route: 048

REACTIONS (1)
  - Anaphylactic reaction [Recovered/Resolved]
